FAERS Safety Report 19929291 (Version 3)
Quarter: 2022Q1

REPORT INFORMATION
  Report Type: Spontaneous
  Country: DE (occurrence: DE)
  Receive Date: 20211007
  Receipt Date: 20220111
  Transmission Date: 20220423
  Serious: Yes (Hospitalization, Other)
  Sender: FDA-Public Use
  Company Number: NVSC2021DE226189

PATIENT
  Age: 86 Year
  Sex: Female

DRUGS (2)
  1. BEOVU [Suspect]
     Active Substance: BROLUCIZUMAB-DBLL
     Indication: Neovascular age-related macular degeneration
     Dosage: UNK, (6 WEEKS), (LEFT EYE)
     Route: 031
     Dates: start: 20210721
  2. BEOVU [Suspect]
     Active Substance: BROLUCIZUMAB-DBLL
     Dosage: UNK, (6 WEEKS), (LEFT EYE)
     Route: 031
     Dates: start: 20210915

REACTIONS (7)
  - Retinal vasculitis [Not Recovered/Not Resolved]
  - Retinal artery occlusion [Not Recovered/Not Resolved]
  - Blindness [Unknown]
  - Eye pain [Unknown]
  - Retinal haemorrhage [Unknown]
  - Retinal ischaemia [Unknown]
  - Retinal perivascular sheathing [Unknown]

NARRATIVE: CASE EVENT DATE: 20210915
